FAERS Safety Report 13615780 (Version 1)
Quarter: 2017Q2

REPORT INFORMATION
  Report Type: Report from Study
  Country: IT (occurrence: IT)
  Receive Date: 20170606
  Receipt Date: 20170606
  Transmission Date: 20170830
  Serious: Yes (Death)
  Sender: FDA-Public Use
  Company Number: IT-ROCHE-1548789

PATIENT
  Age: 63 Year
  Sex: Male
  Weight: 84 kg

DRUGS (2)
  1. IPILIMUMAB [Suspect]
     Active Substance: IPILIMUMAB
     Indication: MALIGNANT MELANOMA
     Dosage: 2ND LINE TREATMENT
     Route: 065
     Dates: start: 20150630, end: 20150805
  2. VEMURAFENIB [Suspect]
     Active Substance: VEMURAFENIB
     Indication: MALIGNANT MELANOMA
     Dosage: 240 MG - FILM-COATED TABLET, BLISTER PACK
     Route: 048
     Dates: start: 20150216, end: 20150401

REACTIONS (9)
  - Dyspepsia [Recovered/Resolved]
  - Dyspepsia [Recovered/Resolved]
  - Pruritus [Recovered/Resolved]
  - Dermatitis [Recovered/Resolved]
  - Pyrexia [Unknown]
  - Abdominal pain upper [Recovered/Resolved]
  - Dyspepsia [Recovered/Resolved]
  - Pyrexia [Fatal]
  - Conjunctivitis [Recovered/Resolved]

NARRATIVE: CASE EVENT DATE: 20150224
